FAERS Safety Report 9931272 (Version 1)
Quarter: 2014Q1

REPORT INFORMATION
  Report Type: Spontaneous
  Country: CD (occurrence: CD)
  Receive Date: 20140228
  Receipt Date: 20140228
  Transmission Date: 20141002
  Serious: Yes (Hospitalization, Other)
  Sender: FDA-Public Use
  Company Number: CD-009507513-1402COD012126

PATIENT
  Age: 43 Year
  Sex: Male

DRUGS (1)
  1. IVERMECTIN [Suspect]
     Dosage: 4 TABLETS
     Route: 048
     Dates: start: 20131130

REACTIONS (8)
  - Loss of consciousness [Recovered/Resolved]
  - Nervous system disorder [Recovered/Resolved]
  - Blood pressure abnormal [Recovered/Resolved]
  - Mutism [Recovered/Resolved]
  - Incontinence [Recovered/Resolved]
  - Conjunctival haemorrhage [Recovered/Resolved]
  - Headache [Recovered/Resolved]
  - Arthralgia [Recovered/Resolved]
